FAERS Safety Report 7827910-7 (Version None)
Quarter: 2011Q4

REPORT INFORMATION
  Report Type: 
  Country: None (occurrence: None)
  Receive Date: 20111018
  Receipt Date: 20111009
  Transmission Date: 20120403
  Serious: Yes (Hospitalization)
  Sender: FDA-Public Use
  Company Number: 2011ST000359

PATIENT
  Age: 55 Year
  Sex: Male

DRUGS (1)
  1. ABELCET [Suspect]
     Indication: BRONCHOPULMONARY ASPERGILLOSIS
     Dosage: 300 MG; X1; IV
     Route: 042
     Dates: start: 20110907, end: 20110908

REACTIONS (2)
  - PYREXIA [None]
  - TREMOR [None]
